FAERS Safety Report 6827907-X (Version None)
Quarter: 2010Q3

REPORT INFORMATION
  Report Type: 
  Country: None (occurrence: None)
  Receive Date: 20100709
  Receipt Date: 20100702
  Transmission Date: 20110219
  Serious: Yes (Death)
  Sender: FDA-Public Use
  Company Number: A0868397A

PATIENT
  Age: 63 Year
  Sex: Male

DRUGS (4)
  1. TYKERB [Suspect]
     Indication: BREAST CANCER MALE
     Route: 048
     Dates: start: 20090301, end: 20100326
  2. XELODA [Concomitant]
  3. IRON [Concomitant]
  4. VITAMIN C [Concomitant]

REACTIONS (7)
  - DIARRHOEA [None]
  - DISEASE PROGRESSION [None]
  - PNEUMONIA [None]
  - RESPIRATORY ARREST [None]
  - SEPSIS [None]
  - VOMITING [None]
  - WEIGHT DECREASED [None]
